FAERS Safety Report 6925812-1 (Version None)
Quarter: 2010Q3

REPORT INFORMATION
  Report Type: 
  Country: None (occurrence: None)
  Receive Date: 20100810
  Receipt Date: 20100721
  Transmission Date: 20110219
  Serious: Yes (Death, Life-Threatening)
  Sender: FDA-Public Use
  Company Number: AMI0023411

PATIENT
  Age: 61 Year
  Sex: Male

DRUGS (7)
  1. TIMOPTIC [Suspect]
     Indication: PRODUCT USED FOR UNKNOWN INDICATION
     Dosage: 2 DROPS/DAILY/046
     Dates: end: 20100625
  2. TAB IVABRADINE HYDROCHLORIDE [Suspect]
     Indication: CORONARY ARTERY DISEASE
     Dosage: 5MG/BID/047
     Dates: start: 20100625, end: 20100625
  3. ALPRAZOLAM [Concomitant]
  4. ASPIRIN LYSINE [Concomitant]
  5. ATORVASTATIN CALCIUM [Concomitant]
  6. MEPROBAMATE [Concomitant]
  7. OMEPRAZOLE [Concomitant]

REACTIONS (7)
  - BRADYCARDIA [None]
  - CARDIAC ARREST [None]
  - DIALYSIS [None]
  - DRUG INTERACTION [None]
  - LEFT VENTRICULAR FAILURE [None]
  - MALAISE [None]
  - SHOCK [None]
